FAERS Safety Report 4485217-2 (Version None)
Quarter: 2004Q4

REPORT INFORMATION
  Report Type: 
  Country: None (occurrence: None)
  Receive Date: 20041026
  Receipt Date: 20040616
  Transmission Date: 20050328
  Serious: No
  Sender: FDA-Public Use
  Company Number: US-BRISTOL-MYERS SQUIBB COMPANY-12617528

PATIENT
  Age: 74 Year
  Sex: Female
  Weight: 82 kg

DRUGS (5)
  1. GLUCOPHAGE XR [Suspect]
     Indication: DIABETES MELLITUS
     Dosage: THERAPY FROM:  ^YEARS AGO^
     Route: 048
  2. LOTENSIN [Concomitant]
  3. QUININE SULFATE [Concomitant]
  4. BENTYL [Concomitant]
  5. MECLIZINE [Concomitant]

REACTIONS (1)
  - LENTIGO [None]
